FAERS Safety Report 4760856-X (Version None)
Quarter: 2005Q3

REPORT INFORMATION
  Report Type: 
  Country: None (occurrence: None)
  Receive Date: 20050901
  Receipt Date: 20050822
  Transmission Date: 20060218
  Serious: Yes (Other)
  Sender: FDA-Public Use
  Company Number: 2005118776

PATIENT
  Sex: Male
  Weight: 78.9259 kg

DRUGS (3)
  1. CELEBREX [Suspect]
     Indication: ARTHRITIS
     Dosage: 200 MG AS NECESSARY
  2. LIPITOR [Concomitant]
  3. MULTIVITAMIN [Concomitant]

REACTIONS (4)
  - ARTHRITIS [None]
  - CONDITION AGGRAVATED [None]
  - MALIGNANT MELANOMA [None]
  - POST PROCEDURAL COMPLICATION [None]
